FAERS Safety Report 9124314 (Version 1)
Quarter: 2013Q1

REPORT INFORMATION
  Report Type: Spontaneous
  Country: US (occurrence: US)
  Receive Date: 20130227
  Receipt Date: 20130227
  Transmission Date: 20140127
  Serious: No
  Sender: FDA-Public Use
  Company Number: US-009507513-1302USA007773

PATIENT
  Sex: Male

DRUGS (5)
  1. CLARITIN-D [Suspect]
     Indication: SINUS CONGESTION
  2. SUDAFED [Concomitant]
     Indication: SINUS CONGESTION
     Dosage: 1 DF, BID
     Dates: start: 20130205
  3. HYDROCODONE [Concomitant]
     Indication: MUSCULOSKELETAL DISCOMFORT
  4. ADVIL [Concomitant]
  5. KLONOPIN [Concomitant]
     Indication: ANXIETY

REACTIONS (6)
  - Feeling abnormal [Unknown]
  - Drug ineffective [Unknown]
  - Sinus congestion [Unknown]
  - Nasal congestion [Unknown]
  - Sinus congestion [Unknown]
  - Drug ineffective [Unknown]
